FAERS Safety Report 10408989 (Version 1)
Quarter: 2014Q3

REPORT INFORMATION
  Report Type: Spontaneous
  Country: GB (occurrence: None)
  Receive Date: 20140822
  Receipt Date: 20140822
  Transmission Date: 20150326
  Serious: Yes (Congenital Anomaly, Other)
  Sender: FDA-Public Use
  Company Number: GB-ZYDUS-004286

PATIENT
  Sex: Male
  Weight: 3.48 kg

DRUGS (1)
  1. SODIUM VALPROATE (SODIUM VALPROATE) [Suspect]
     Active Substance: VALPROATE SODIUM
     Dosage: 16.00-MG-.1.0DAYS/ TRANSPLACENTAL
     Route: 064

REACTIONS (10)
  - Foetal anticonvulsant syndrome [None]
  - Otitis media [None]
  - Learning disorder [None]
  - Iris coloboma [None]
  - Torticollis [None]
  - Inguinal hernia [None]
  - Maternal drugs affecting foetus [None]
  - Retinal coloboma [None]
  - Myopia [None]
  - Hypospadias [None]
